FAERS Safety Report 19228809 (Version 2)
Quarter: 2022Q2

REPORT INFORMATION
  Report Type: Spontaneous
  Country: US (occurrence: None)
  Receive Date: 20210506
  Receipt Date: 20220426
  Transmission Date: 20220720
  Serious: No
  Sender: FDA-Public Use
  Company Number: US-ROCHE-2764954

PATIENT
  Age: 72 Year
  Sex: Female

DRUGS (1)
  1. ESBRIET [Suspect]
     Active Substance: PIRFENIDONE
     Indication: Idiopathic pulmonary fibrosis
     Dosage: 267 MG THREE TIMES A DAY, THEN 534 MG THREE TIMES A DAY FOR 7 DAYS AND THEN 801 MG THREE TIMES A DAY
     Route: 048
     Dates: start: 20210120, end: 202103

REACTIONS (9)
  - Anxiety [Unknown]
  - Dizziness [Unknown]
  - Paraesthesia [Unknown]
  - Confusional state [Unknown]
  - Neuropathy peripheral [Unknown]
  - Nausea [Unknown]
  - Decreased appetite [Unknown]
  - Vertigo [Unknown]
  - Insomnia [Unknown]

NARRATIVE: CASE EVENT DATE: 20210201
